FAERS Safety Report 5797897-X (Version None)
Quarter: 2008Q2

REPORT INFORMATION
  Report Type: 
  Country: None (occurrence: None)
  Receive Date: 20080630
  Receipt Date: 20080618
  Transmission Date: 20081010
  Serious: Yes (Other)
  Sender: FDA-Public Use
  Company Number: GB-1166497

PATIENT
  Age: 79 Year
  Sex: Male

DRUGS (1)
  1. TRAVATAN [Suspect]
     Dosage: OPHTHALMIC
     Route: 047

REACTIONS (3)
  - CHOROIDAL DETACHMENT [None]
  - HYPOTONY OF EYE [None]
  - INTRAOCULAR PRESSURE INCREASED [None]
